FAERS Safety Report 7281839-4 (Version None)
Quarter: 2011Q1

REPORT INFORMATION
  Report Type: 
  Country: None (occurrence: None)
  Receive Date: 20110208
  Receipt Date: 20110126
  Transmission Date: 20110831
  Serious: Yes (Other)
  Sender: FDA-Public Use
  Company Number: IT-ELI_LILLY_AND_COMPANY-IT200702005119

PATIENT
  Age: 80 Year
  Sex: Female

DRUGS (4)
  1. ADALAT [Concomitant]
     Indication: ESSENTIAL HYPERTENSION
     Dosage: 30 MG, UNKNOWN
     Route: 048
  2. FORTEO [Suspect]
     Indication: OSTEOPOROSIS
     Dosage: UNK, UNKNOWN
     Route: 058
     Dates: start: 20040605, end: 20040606
  3. FORTEO [Suspect]
     Dosage: UNK, UNKNOWN
     Route: 058
  4. LASIX [Concomitant]
     Dosage: UNK, UNKNOWN

REACTIONS (2)
  - CYANOSIS [None]
  - DYSPNOEA [None]
